FAERS Safety Report 4554625-3 (Version None)
Quarter: 2005Q1

REPORT INFORMATION
  Report Type: 
  Country: None (occurrence: None)
  Receive Date: 20041228
  Receipt Date: 20041112
  Transmission Date: 20050727
  Serious: No
  Sender: FDA-Public Use
  Company Number: IND-AE-04-SAN-016

PATIENT
  Sex: Female

DRUGS (7)
  1. SANCTURA [Suspect]
     Indication: HYPERTONIC BLADDER
     Dosage: 20MG - BID - ORAL
     Route: 048
     Dates: start: 20041028, end: 20041116
  2. OXYTROL [Suspect]
     Indication: HYPERTONIC BLADDER
     Dates: start: 20041022, end: 20041109
  3. FLORINEF [Concomitant]
  4. PROAMATINE [Concomitant]
  5. ZOCOR [Concomitant]
  6. FOSAMAX [Concomitant]
  7. VAGIFEM [Concomitant]

REACTIONS (1)
  - URINARY RETENTION [None]
